FAERS Safety Report 10555084 (Version 1)
Quarter: 2014Q4

REPORT INFORMATION
  Report Type: Spontaneous
  Country: US (occurrence: None)
  Receive Date: 20141029
  Receipt Date: 20141029
  Transmission Date: 20150529
  Serious: Yes (Disabling)
  Sender: FDA-Public Use
  Company Number: None

PATIENT
  Age: 31 Year
  Sex: Male
  Weight: 72.58 kg

DRUGS (1)
  1. CIPROFLOXACIN. [Suspect]
     Active Substance: CIPROFLOXACIN
     Indication: OTITIS EXTERNA
     Dosage: 1 PILL TWICE DAILY TAKEN BY MOUTH
     Route: 048
     Dates: start: 20140528, end: 20140601

REACTIONS (11)
  - Tendon pain [None]
  - Musculoskeletal pain [None]
  - Pain in extremity [None]
  - Cognitive disorder [None]
  - Activities of daily living impaired [None]
  - Arthralgia [None]
  - Mobility decreased [None]
  - Burning sensation [None]
  - Palpitations [None]
  - Memory impairment [None]
  - Disturbance in attention [None]

NARRATIVE: CASE EVENT DATE: 20140601
